FAERS Safety Report 4849542-5 (Version None)
Quarter: 2005Q4

REPORT INFORMATION
  Report Type: 
  Country: None (occurrence: None)
  Receive Date: 20051207
  Receipt Date: 20051117
  Transmission Date: 20060501
  Serious: Yes (Other)
  Sender: FDA-Public Use
  Company Number: 2005BI021096

PATIENT
  Age: 43 Year
  Sex: Female
  Weight: 52.6173 kg

DRUGS (2)
  1. AVONEX [Suspect]
     Dosage: 30 UG;QW;IM
     Route: 030
     Dates: start: 19980101, end: 20030101
  2. AVONEX [Suspect]
     Indication: MULTIPLE SCLEROSIS
     Dosage: 30 UG;QW;IM
     Route: 030
     Dates: start: 20030101

REACTIONS (1)
  - BLINDNESS UNILATERAL [None]
